FAERS Safety Report 13272276 (Version 1)
Quarter: 2017Q1

REPORT INFORMATION
  Report Type: Spontaneous
  Country: US (occurrence: US)
  Receive Date: 20170224
  Receipt Date: 20170224
  Transmission Date: 20170428
  Serious: No
  Sender: FDA-Public Use
  Company Number: None

PATIENT
  Age: 58 Year
  Sex: Male

DRUGS (7)
  1. EPLERENONE. [Concomitant]
     Active Substance: EPLERENONE
  2. METOLAZONE. [Concomitant]
     Active Substance: METOLAZONE
  3. OCALIVA [Suspect]
     Active Substance: OBETICHOLIC ACID
     Indication: CHOLANGITIS
     Dosage: 1 TABLET DAILY PO
     Route: 048
     Dates: start: 20161223
  4. TAMSULOSIN [Concomitant]
     Active Substance: TAMSULOSIN
  5. CARVEDILOL. [Concomitant]
     Active Substance: CARVEDILOL
  6. BUDESONIDE. [Concomitant]
     Active Substance: BUDESONIDE
  7. ATORVASTATIN [Concomitant]
     Active Substance: ATORVASTATIN

REACTIONS (1)
  - Pruritus [None]
